FAERS Safety Report 25707709 (Version 1)
Quarter: 2025Q3

REPORT INFORMATION
  Report Type: Spontaneous
  Country: EU (occurrence: EU)
  Receive Date: 20250820
  Receipt Date: 20250820
  Transmission Date: 20251021
  Serious: Yes (Hospitalization)
  Sender: REGENERON
  Company Number: None

PATIENT
  Age: 65 Year
  Sex: Male
  Weight: 85 kg

DRUGS (1)
  1. LIBTAYO [Suspect]
     Active Substance: CEMIPLIMAB-RWLC
     Indication: Metastatic squamous cell carcinoma
     Route: 042
     Dates: start: 20250107, end: 20250523

REACTIONS (2)
  - Pancreatitis acute [Recovered/Resolved]
  - Lipase [Recovering/Resolving]

NARRATIVE: CASE EVENT DATE: 20250710
